FAERS Safety Report 9692568 (Version 2)
Quarter: 2013Q4

REPORT INFORMATION
  Report Type: Spontaneous
  Country: US (occurrence: US)
  Receive Date: 20131118
  Receipt Date: 20131127
  Transmission Date: 20140711
  Serious: No
  Sender: FDA-Public Use
  Company Number: US-PFIZER INC-2013327495

PATIENT
  Age: 49 Year
  Sex: Male
  Weight: 88.4 kg

DRUGS (2)
  1. GABAPENTIN [Suspect]
     Indication: POLYNEUROPATHY IN MALIGNANT DISEASE
     Dosage: 800 MG, 3X/DAY
  2. PERCOCET [Concomitant]
     Dosage: 5 MG, UNK

REACTIONS (2)
  - Off label use [Unknown]
  - Drug effect incomplete [Unknown]
